FAERS Safety Report 8460884-7 (Version None)
Quarter: 2012Q2

REPORT INFORMATION
  Report Type: 
  Country: None (occurrence: None)
  Receive Date: 20120625
  Receipt Date: 20120620
  Transmission Date: 20120825
  Serious: Yes (Hospitalization)
  Sender: FDA-Public Use
  Company Number: US-AMGEN-USASP2012038371

PATIENT
  Age: 31 Year
  Sex: Female

DRUGS (1)
  1. ENBREL [Suspect]
     Indication: RHEUMATOID ARTHRITIS
     Dosage: 50 MG, QWK
     Dates: start: 20110601

REACTIONS (8)
  - KIDNEY INFECTION [None]
  - INJECTION SITE PRURITUS [None]
  - INJECTION SITE PAIN [None]
  - RENAL SURGERY [None]
  - INJECTION SITE ERYTHEMA [None]
  - SINUSITIS [None]
  - INJECTION SITE SWELLING [None]
  - INJECTION SITE WARMTH [None]
